FAERS Safety Report 10023630 (Version 1)
Quarter: 2014Q1

REPORT INFORMATION
  Report Type: Spontaneous
  Country: US (occurrence: US)
  Receive Date: 20140320
  Receipt Date: 20140320
  Transmission Date: 20141002
  Serious: Yes (Hospitalization)
  Sender: FDA-Public Use
  Company Number: US-JNJFOC-20140308524

PATIENT
  Age: 9 Year
  Sex: Male
  Weight: 31.6 kg

DRUGS (7)
  1. RISPERIDONE [Suspect]
     Indication: OPPOSITIONAL DEFIANT DISORDER
     Route: 048
  2. RISPERIDONE [Suspect]
     Indication: OPPOSITIONAL DEFIANT DISORDER
     Dosage: 0.25MG IN THE MORNING 1MG IN THE EVENING
     Route: 048
     Dates: end: 20140306
  3. RISPERIDONE [Suspect]
     Indication: OPPOSITIONAL DEFIANT DISORDER
     Route: 048
     Dates: start: 20140307, end: 20140310
  4. RISPERIDONE [Suspect]
     Indication: ATTENTION DEFICIT/HYPERACTIVITY DISORDER
     Dosage: 0.25MG IN THE MORNING 1MG IN THE EVENING
     Route: 048
     Dates: end: 20140306
  5. RISPERIDONE [Suspect]
     Indication: ATTENTION DEFICIT/HYPERACTIVITY DISORDER
     Route: 048
     Dates: start: 20140307, end: 20140310
  6. RISPERIDONE [Suspect]
     Indication: ATTENTION DEFICIT/HYPERACTIVITY DISORDER
     Route: 048
  7. FOCALIN XR [Suspect]
     Indication: ATTENTION DEFICIT/HYPERACTIVITY DISORDER
     Route: 048

REACTIONS (3)
  - Pancytopenia [Not Recovered/Not Resolved]
  - Adverse drug reaction [Unknown]
  - Off label use [Recovered/Resolved]
